FAERS Safety Report 9617199 (Version 1)
Quarter: 2013Q4

REPORT INFORMATION
  Report Type: Report from Study
  Country: US (occurrence: US)
  Receive Date: 20131011
  Receipt Date: 20131011
  Transmission Date: 20140711
  Serious: Yes (Death)
  Sender: FDA-Public Use
  Company Number: US-ROCHE-1287818

PATIENT
  Sex: Female

DRUGS (9)
  1. AVASTIN [Suspect]
     Indication: BREAST CANCER METASTATIC
     Route: 042
     Dates: start: 20130619, end: 20130726
  2. FENTORA [Concomitant]
     Indication: PAIN
  3. ATIVAN [Concomitant]
     Indication: ANXIETY
  4. ZOFRAN [Concomitant]
  5. PREVACID [Concomitant]
     Indication: DYSPEPSIA
  6. REMERON [Concomitant]
  7. FENTANYL [Concomitant]
     Indication: PAIN
  8. GEMZAR [Concomitant]
  9. DOCETAXOL [Concomitant]

REACTIONS (1)
  - Pneumonitis [Fatal]
